FAERS Safety Report 11135539 (Version 1)
Quarter: 2015Q2

REPORT INFORMATION
  Report Type: Spontaneous
  Country: US (occurrence: None)
  Receive Date: 20150522
  Receipt Date: 20150522
  Transmission Date: 20150821
  Serious: Yes (Other)
  Sender: FDA-Public Use
  Company Number: None

PATIENT
  Age: 68 Year
  Sex: Male
  Weight: 102 kg

DRUGS (1)
  1. ALBUMIN 5% / ALBUREX [Suspect]
     Active Substance: ALBUMIN (HUMAN)
     Indication: PLASMAPHERESIS
     Dosage: 7 BOTTLES FOR PLASAPHERESIS INTRAVENOUS
     Route: 042
     Dates: start: 20150515, end: 20150515

REACTIONS (1)
  - Chills [None]

NARRATIVE: CASE EVENT DATE: 20150515
